FAERS Safety Report 7248853-6 (Version None)
Quarter: 2011Q1

REPORT INFORMATION
  Report Type: 
  Country: None (occurrence: None)
  Receive Date: 20110128
  Receipt Date: 20100419
  Transmission Date: 20110831
  Serious: Yes (Life-Threatening, Hospitalization, Other)
  Sender: FDA-Public Use
  Company Number: US-BAYER-200923694NA

PATIENT
  Sex: Female
  Weight: 56.364 kg

DRUGS (8)
  1. YAZ [Suspect]
     Indication: UTERINE LEIOMYOMA
  2. NITROGLYCERIN [Concomitant]
     Route: 065
  3. LOVAZA [Concomitant]
     Dosage: 1000 MG (DAILY DOSE), QD, UNKNOWN
     Route: 065
  4. ASCORBIC ACID [Concomitant]
     Route: 065
  5. MAGNESIUM [MAGNESIUM OXIDE] [Concomitant]
     Route: 065
  6. DILTIAZEM [Concomitant]
     Route: 065
  7. NITROGLYCERIN [Concomitant]
     Route: 065
  8. YAZ [Suspect]
     Indication: CONTRACEPTION
     Dosage: PHARMACY RECORDS: 01-DEC-2006 TO 14-MAY-2007
     Route: 048
     Dates: start: 20061001, end: 20070606

REACTIONS (27)
  - CORONARY ARTERY DISSECTION [None]
  - ANGINA PECTORIS [None]
  - PALPITATIONS [None]
  - EMOTIONAL DISTRESS [None]
  - URINARY TRACT INFECTION [None]
  - MUSCULOSKELETAL PAIN [None]
  - NERVOUSNESS [None]
  - MENTAL DISORDER [None]
  - CARDIAC ARREST [None]
  - VENTRICULAR FIBRILLATION [None]
  - ACUTE MYOCARDIAL INFARCTION [None]
  - BACK PAIN [None]
  - NAUSEA [None]
  - CHEST DISCOMFORT [None]
  - HEADACHE [None]
  - PERICARDITIS [None]
  - MYALGIA [None]
  - CONSTIPATION [None]
  - INSOMNIA [None]
  - CORONARY ARTERY OCCLUSION [None]
  - ARTERIOSPASM CORONARY [None]
  - RAYNAUD'S PHENOMENON [None]
  - DIZZINESS [None]
  - WEIGHT INCREASED [None]
  - ANXIETY [None]
  - SENSATION OF HEAVINESS [None]
  - CHEST PAIN [None]
